FAERS Safety Report 9971276 (Version 1)
Quarter: 2014Q1

REPORT INFORMATION
  Report Type: Spontaneous
  Country: US (occurrence: None)
  Receive Date: 20140304
  Receipt Date: 20140304
  Transmission Date: 20141002
  Serious: Yes (Other)
  Sender: FDA-Public Use
  Company Number: 14-00580

PATIENT
  Age: 49 Year
  Sex: Female
  Weight: 86.64 kg

DRUGS (3)
  1. ASTHMANEFRIN INHALATION SOLUTION, 2.25% [Suspect]
     Dosage: 1-3 INHALATION 054
     Dates: start: 20140223
  2. CYMBALTA [Concomitant]
  3. LORATADINE [Concomitant]

REACTIONS (9)
  - Tremor [None]
  - Tremor [None]
  - Loss of consciousness [None]
  - Speech disorder [None]
  - Dizziness [None]
  - Drug interaction [None]
  - Muscle spasms [None]
  - Hyperventilation [None]
  - Infection [None]
